FAERS Safety Report 5179100-7 (Version None)
Quarter: 2006Q4

REPORT INFORMATION
  Report Type: 
  Country: None (occurrence: None)
  Receive Date: 20061214
  Receipt Date: 20061214
  Transmission Date: 20070319
  Serious: Yes (Hospitalization)
  Sender: FDA-Public Use
  Company Number: None

PATIENT
  Age: 88 Year
  Sex: Male
  Weight: 83.5 kg

DRUGS (9)
  1. COZAAR [Suspect]
     Dosage: 50MG QDBY MOUTH
     Route: 048
     Dates: start: 20050930, end: 20051130
  2. MECLIZINE HCL [Concomitant]
  3. SERTRALINE HCL [Concomitant]
  4. METOPROLOL TARTRATE [Concomitant]
  5. TERAZOSIN HCL [Concomitant]
  6. TIMOLOL MALEATE [Concomitant]
  7. TRAVOPROST [Concomitant]
  8. PRILOSEC [Concomitant]
  9. DEMEROL [Concomitant]

REACTIONS (2)
  - ABDOMINAL DISCOMFORT [None]
  - PANCREATITIS [None]
